FAERS Safety Report 21944755 (Version 3)
Quarter: 2023Q2

REPORT INFORMATION
  Report Type: Spontaneous
  Country: US (occurrence: US)
  Receive Date: 20230202
  Receipt Date: 20230505
  Transmission Date: 20230721
  Serious: Yes (Other)
  Sender: FDA-Public Use
  Company Number: US-GSKCCFUS-AE-9134

PATIENT

DRUGS (3)
  1. BENLYSTA [Suspect]
     Active Substance: BELIMUMAB
     Indication: Systemic lupus erythematosus
     Dosage: UNK
     Route: 042
     Dates: start: 201901
  2. PLAQUENIL [Suspect]
     Active Substance: HYDROXYCHLOROQUINE SULFATE
     Indication: Product used for unknown indication
     Dosage: UNK
  3. ENTRESTO [Suspect]
     Active Substance: SACUBITRIL\VALSARTAN
     Indication: Product used for unknown indication
     Dosage: UNK

REACTIONS (29)
  - Cardiac failure congestive [Unknown]
  - Impaired gastric emptying [Unknown]
  - Loss of consciousness [Unknown]
  - Cardiac dysfunction [Unknown]
  - Immunosuppression [Unknown]
  - Balance disorder [Unknown]
  - Memory impairment [Unknown]
  - Aphasia [Unknown]
  - Fatigue [Unknown]
  - Dyspnoea [Unknown]
  - Illness [Unknown]
  - Blood pressure decreased [Unknown]
  - Oesophageal achalasia [Unknown]
  - Regurgitation [Unknown]
  - Eating disorder [Unknown]
  - Vitamin B12 deficiency [Unknown]
  - Malaise [Unknown]
  - COVID-19 [Unknown]
  - Anxiety [Unknown]
  - Depression [Unknown]
  - Clumsiness [Unknown]
  - Nasal congestion [Unknown]
  - Nasopharyngitis [Unknown]
  - Pharyngitis [Unknown]
  - Cough [Unknown]
  - Lymphadenopathy [Unknown]
  - Productive cough [Unknown]
  - Impaired healing [Unknown]
  - Product prescribing error [Unknown]

NARRATIVE: CASE EVENT DATE: 20230104
